FAERS Safety Report 9997609 (Version 2)
Quarter: 2014Q1

REPORT INFORMATION
  Report Type: Report from Study
  Country: US (occurrence: US)
  Receive Date: 20140311
  Receipt Date: 20140311
  Transmission Date: 20141002
  Serious: No
  Sender: FDA-Public Use
  Company Number: PHEH2014US002291

PATIENT
  Sex: Male

DRUGS (1)
  1. ILARIS [Suspect]
     Dosage: 60 MG, QMO
     Route: 058

REACTIONS (3)
  - Eczema [Unknown]
  - Skin exfoliation [Unknown]
  - Rash generalised [Unknown]
